FAERS Safety Report 19436611 (Version 1)
Quarter: 2021Q2

REPORT INFORMATION
  Report Type: Spontaneous
  Country: US (occurrence: US)
  Receive Date: 20210618
  Receipt Date: 20210618
  Transmission Date: 20210717
  Serious: Yes (Hospitalization)
  Sender: FDA-Public Use
  Company Number: US-SAMSUNG BIOEPIS-SB-2021-14325

PATIENT
  Age: 63 Year
  Sex: Female

DRUGS (1)
  1. INFLIXIMAB [Suspect]
     Active Substance: INFLIXIMAB
     Indication: INFLAMMATORY BOWEL DISEASE
     Dosage: UNKNOWN
     Route: 065

REACTIONS (5)
  - Lupus encephalitis [Recovering/Resolving]
  - Off label use [Unknown]
  - Systemic lupus erythematosus [Recovering/Resolving]
  - Lupus-like syndrome [Recovering/Resolving]
  - Drug specific antibody present [Unknown]
